FAERS Safety Report 11811493 (Version 1)
Quarter: 2015Q4

REPORT INFORMATION
  Report Type: Spontaneous
  Country: US (occurrence: US)
  Receive Date: 20151208
  Receipt Date: 20151208
  Transmission Date: 20160305
  Serious: No
  Sender: FDA-Public Use
  Company Number: US-BIOCOMPATIBLES UK LTD-BTG00369

PATIENT

DRUGS (1)
  1. VARITHENA [Suspect]
     Active Substance: POLIDOCANOL
     Indication: VARICOSE VEIN
     Dosage: UNK
     Dates: start: 20150910

REACTIONS (4)
  - Phlebitis [Unknown]
  - Chills [Unknown]
  - Musculoskeletal discomfort [Unknown]
  - Groin pain [None]

NARRATIVE: CASE EVENT DATE: 20150910
